FAERS Safety Report 5703107-1 (Version None)
Quarter: 2008Q2

REPORT INFORMATION
  Report Type: 
  Country: None (occurrence: None)
  Receive Date: 20080411
  Receipt Date: 20080331
  Transmission Date: 20081010
  Serious: Yes (Other)
  Sender: FDA-Public Use
  Company Number: FR-PFIZER INC-2006126679

PATIENT
  Sex: Male
  Weight: 56 kg

DRUGS (4)
  1. LYRICA [Suspect]
     Indication: POLYNEUROPATHY
     Route: 048
  2. LYRICA [Suspect]
     Indication: DYSAESTHESIA
  3. NEURONTIN [Suspect]
     Indication: NEURALGIA
  4. CLONAZEPAM [Concomitant]

REACTIONS (22)
  - ATAXIA [None]
  - BACK PAIN [None]
  - CEREBELLAR SYNDROME [None]
  - COORDINATION ABNORMAL [None]
  - DIARRHOEA [None]
  - DRUG INEFFECTIVE [None]
  - DRUG WITHDRAWAL SYNDROME [None]
  - DRY MOUTH [None]
  - DYSAESTHESIA [None]
  - DYSARTHRIA [None]
  - DYSGRAPHIA [None]
  - DYSURIA [None]
  - FEELING DRUNK [None]
  - HYPERAESTHESIA [None]
  - INSOMNIA [None]
  - INTENTIONAL DRUG MISUSE [None]
  - MULTIPLE SCLEROSIS [None]
  - MYALGIA [None]
  - NAUSEA [None]
  - NERVOUSNESS [None]
  - POLLAKIURIA [None]
  - POLYNEUROPATHY [None]
